FAERS Safety Report 4845909-X (Version None)
Quarter: 2005Q4

REPORT INFORMATION
  Report Type: 
  Country: None (occurrence: None)
  Receive Date: 20051201
  Receipt Date: 20051118
  Transmission Date: 20060501
  Serious: Yes (Other)
  Sender: FDA-Public Use
  Company Number: 2005159117

PATIENT
  Sex: Male

DRUGS (2)
  1. CELEBREX [Suspect]
     Indication: POLYTRAUMATISM
     Dates: start: 20020101
  2. VIOXX [Suspect]
     Indication: SHOULDER OPERATION
     Dates: start: 20021001

REACTIONS (1)
  - PULMONARY HYPERTENSION [None]
